FAERS Safety Report 9410165 (Version 1)
Quarter: 2013Q2

REPORT INFORMATION
  Report Type: Spontaneous
  Country: US (occurrence: None)
  Receive Date: 20130419
  Receipt Date: 20130419
  Transmission Date: 20140414
  Serious: Yes (Life-Threatening)
  Sender: FDA-Public Use
  Company Number: RSAE110210TG001

PATIENT
  Age: 7 Month
  Sex: Male
  Weight: 11.79 kg

DRUGS (1)
  1. HYLAND^S TEETHING TABLETS [Suspect]
     Indication: TEETHING
     Dosage: TWICE A DAY X 10 MOS

REACTIONS (4)
  - Convulsion [None]
  - Pain in extremity [None]
  - Influenza immunisation [None]
  - Body temperature increased [None]
